FAERS Safety Report 7329085-X (Version None)
Quarter: 2011Q1

REPORT INFORMATION
  Report Type: 
  Country: None (occurrence: None)
  Receive Date: 20110303
  Receipt Date: 20110302
  Transmission Date: 20110831
  Serious: Yes (Congenital Anomaly)
  Sender: FDA-Public Use
  Company Number: US-ABBOTT-11P-163-0708414-00

PATIENT

DRUGS (2)
  1. KALETRA [Suspect]
     Indication: DRUG EXPOSURE DURING PREGNANCY
     Route: 064
  2. COMBIVIR [Suspect]
     Indication: DRUG EXPOSURE DURING PREGNANCY
     Route: 064

REACTIONS (2)
  - SKULL MALFORMATION [None]
  - DRUG EXPOSURE DURING PREGNANCY [None]
